FAERS Safety Report 8163434-8 (Version None)
Quarter: 2012Q1

REPORT INFORMATION
  Report Type: 
  Country: None (occurrence: None)
  Receive Date: 20120221
  Receipt Date: 20120106
  Transmission Date: 20120608
  Serious: Yes (Hospitalization)
  Sender: FDA-Public Use
  Company Number: COL_10728_2012

PATIENT
  Age: 36 Year
  Sex: Male

DRUGS (1)
  1. PALMOLIVE SOAP BAR NUTRIMILK EXFOLIATING [Suspect]
     Dosage: (SINGLE USE/ TOPICAL)
     Route: 061
     Dates: start: 20120102, end: 20120102

REACTIONS (2)
  - SKIN EXFOLIATION [None]
  - HYPERSENSITIVITY [None]
